FAERS Safety Report 13492792 (Version 3)
Quarter: 2017Q3

REPORT INFORMATION
  Report Type: Spontaneous
  Country: US (occurrence: US)
  Receive Date: 20170427
  Receipt Date: 20170725
  Transmission Date: 20171127
  Serious: No
  Sender: FDA-Public Use
  Company Number: US-JNJFOC-20170426622

PATIENT
  Age: 40 Year
  Sex: Female
  Weight: 53.52 kg

DRUGS (2)
  1. AXERT [Suspect]
     Active Substance: ALMOTRIPTAN MALATE
     Indication: MIGRAINE
     Dosage: IN RESPONSE TO MIGRAINE WITHIN 4 HOURS, SINCE 2010 OR 2011
     Route: 048
     Dates: end: 201612
  2. ALMOTRIPTAN. [Suspect]
     Active Substance: ALMOTRIPTAN
     Indication: MIGRAINE
     Route: 065

REACTIONS (2)
  - Drug ineffective [Unknown]
  - Drug dose omission [Unknown]

NARRATIVE: CASE EVENT DATE: 201612
